FAERS Safety Report 7603278-6 (Version None)
Quarter: 2011Q3

REPORT INFORMATION
  Report Type: 
  Country: None (occurrence: None)
  Receive Date: 20110711
  Receipt Date: 20110711
  Transmission Date: 20111222
  Serious: Yes (Other)
  Sender: FDA-Public Use
  Company Number: None

PATIENT
  Age: 32 Year
  Sex: Female

DRUGS (3)
  1. WELLBUTRIN (BUPROPION XL) [Concomitant]
  2. WELLBUTRIN XL [Suspect]
     Indication: BIPOLAR I DISORDER
     Dosage: 150 MG 9 AM ORAL
     Route: 048
     Dates: start: 20070708, end: 20070715
  3. WELLBUTRIN XL [Suspect]
     Indication: DEPRESSION
     Dosage: 300 MG 9 AM ORAL
     Route: 048

REACTIONS (4)
  - DEPRESSION [None]
  - PRODUCT SUBSTITUTION ISSUE [None]
  - DRUG INEFFECTIVE [None]
  - IMPAIRED WORK ABILITY [None]
